FAERS Safety Report 11499906 (Version 1)
Quarter: 2015Q3

REPORT INFORMATION
  Report Type: Spontaneous
  Country: TR (occurrence: None)
  Receive Date: 20150910
  Receipt Date: 20150910
  Transmission Date: 20151125
  Serious: Yes (Life-Threatening, Other)
  Sender: FDA-Public Use
  Company Number: CCF09032015_0001

PATIENT
  Age: 37 Year
  Sex: Female

DRUGS (5)
  1. BETA BLOCKERS [Concomitant]
  2. ANTIHYPERLIPIDEMICS (NOS) [Concomitant]
     Active Substance: UNSPECIFIED INGREDIENT
  3. CHLORPHENIRAMINE. [Suspect]
     Active Substance: CHLORPHENIRAMINE
     Indication: HYPERSENSITIVITY
     Dosage: INTRADERMAL 0.227 MG/ML
     Route: 023
  4. ACETYLSALICYLIC ACID [Concomitant]
     Active Substance: ASPIRIN
  5. CHLORPHENIRAMINE. [Suspect]
     Active Substance: CHLORPHENIRAMINE
     Indication: PREOPERATIVE CARE
     Route: 042

REACTIONS (1)
  - Drug hypersensitivity [None]
